FAERS Safety Report 20512882 (Version 3)
Quarter: 2022Q2

REPORT INFORMATION
  Report Type: Spontaneous
  Country: DE (occurrence: DE)
  Receive Date: 20220224
  Receipt Date: 20220509
  Transmission Date: 20220720
  Serious: Yes (Other)
  Sender: FDA-Public Use
  Company Number: DE-AMERICAN REGENT INC-2022000459

PATIENT
  Sex: Female
  Weight: 92 kg

DRUGS (1)
  1. FERINJECT [Suspect]
     Active Substance: FERRIC CARBOXYMALTOSE
     Indication: Product used for unknown indication
     Dosage: 500 MG IN 250 ML OF SODIUM CHLORIDE (NACL)
     Dates: start: 2022, end: 2022

REACTIONS (7)
  - Cold sweat [Recovered/Resolved]
  - Cardiovascular disorder [Recovered/Resolved]
  - Oropharyngeal pain [Recovered/Resolved]
  - Pallor [Recovered/Resolved]
  - Maternal exposure during pregnancy [Recovered/Resolved]
  - Dyspnoea [Recovered/Resolved]
  - Hypotension [Recovered/Resolved]

NARRATIVE: CASE EVENT DATE: 20220101
